FAERS Safety Report 24583693 (Version 1)
Quarter: 2024Q4

REPORT INFORMATION
  Report Type: Spontaneous
  Country: US (occurrence: US)
  Receive Date: 20241106
  Receipt Date: 20241106
  Transmission Date: 20250114
  Serious: Yes (Hospitalization)
  Sender: UCB
  Company Number: US-UCBSA-2024056321

PATIENT
  Age: 25 Year
  Sex: Female

DRUGS (1)
  1. RYSTIGGO [Suspect]
     Active Substance: ROZANOLIXIZUMAB-NOLI
     Indication: Myasthenia gravis
     Dosage: 560 MILLIGRAM, WEEKLY (QW)
     Route: 058
     Dates: start: 202402

REACTIONS (4)
  - Hospitalisation [Recovered/Resolved]
  - Dyspnoea [Unknown]
  - General physical health deterioration [Unknown]
  - Product dose omission issue [Unknown]

NARRATIVE: CASE EVENT DATE: 20241017
